FAERS Safety Report 5973111 (Version 31)
Quarter: 2013Q3

REPORT INFORMATION
  Report Type: Spontaneous
  Country: US (occurrence: US)
  Receive Date: 20060131
  Receipt Date: 20130816
  Transmission Date: 20140515
  Serious: Yes (Other)
  Sender: FDA-Public Use
  Company Number: PHEH2006US01233

PATIENT
  Age: 58 Year
  Sex: Female

DRUGS (19)
  1. ZOMETA [Suspect]
     Route: 042
  2. DILAUDID [Concomitant]
  3. TORADOL [Concomitant]
  4. ZOFRAN [Concomitant]
  5. INVANZ [Concomitant]
  6. LOVENOX [Concomitant]
  7. ROCEPHIN [Concomitant]
  8. ENOXAPARIN [Concomitant]
  9. PREDNISONE [Concomitant]
  10. DIGOXIN [Concomitant]
  11. NAPROXEN [Concomitant]
  12. CELECOXIB [Concomitant]
  13. ALPRAZOLAM [Concomitant]
  14. ASCORBIC ACID [Concomitant]
     Dosage: UNK
  15. RANIDINE [Concomitant]
  16. CYCLOSPORINE [Concomitant]
  17. PROTONIX [Concomitant]
  18. PREVACID [Concomitant]
  19. CHEMOTHERAPEUTICS [Concomitant]

REACTIONS (121)
  - Osteonecrosis of jaw [Unknown]
  - Nephrolithiasis [Unknown]
  - Flank pain [Unknown]
  - Renal colic [Unknown]
  - Pyelonephritis [Unknown]
  - Abdominal pain [Unknown]
  - Urinary tract infection [Unknown]
  - Dysuria [Unknown]
  - Calculus ureteric [Unknown]
  - Deep vein thrombosis [Unknown]
  - Arrhythmia [Unknown]
  - Myofascial pain syndrome [Unknown]
  - Spinal osteoarthritis [Unknown]
  - Actinic keratosis [Unknown]
  - Papilloma viral infection [Unknown]
  - Cystocele [Unknown]
  - Osteoporosis [Unknown]
  - Arthritis [Unknown]
  - Anxiety [Unknown]
  - Cardiomyopathy [Unknown]
  - Migraine [Unknown]
  - Carotid bruit [Unknown]
  - Irritable bowel syndrome [Unknown]
  - Carpal tunnel syndrome [Unknown]
  - Lung cancer metastatic [Unknown]
  - Obstructive uropathy [Unknown]
  - Arthralgia [Unknown]
  - Local swelling [Unknown]
  - Gastric ulcer [Unknown]
  - Dyspnoea exertional [Unknown]
  - Dyspepsia [Unknown]
  - Upper respiratory tract infection [Unknown]
  - Cardiac failure congestive [Unknown]
  - Acute sinusitis [Unknown]
  - Rhinitis allergic [Unknown]
  - Anogenital warts [Unknown]
  - Gastritis [Unknown]
  - Hypertension [Unknown]
  - Pneumonia [Unknown]
  - Hypoaesthesia [Unknown]
  - Cystitis [Unknown]
  - Haemorrhoids [Unknown]
  - Umbilical hernia [Unknown]
  - Cardiomegaly [Unknown]
  - Granuloma [Unknown]
  - Infection [Unknown]
  - Cough [Unknown]
  - Respiratory tract congestion [Unknown]
  - Gastrooesophageal reflux disease [Unknown]
  - Ear pain [Unknown]
  - Oropharyngeal pain [Unknown]
  - Eye irritation [Recovered/Resolved]
  - Enthesopathy [Unknown]
  - Exostosis [Unknown]
  - Plantar fascial fibromatosis [Unknown]
  - Aortic calcification [Unknown]
  - Colitis microscopic [Unknown]
  - Diarrhoea [Unknown]
  - Abdominal distension [Unknown]
  - Muscle tightness [Unknown]
  - Muscle spasms [Unknown]
  - Pain in extremity [Unknown]
  - Goitre [Unknown]
  - Helicobacter infection [Unknown]
  - Neuropathy peripheral [Unknown]
  - Uterine polyp [Unknown]
  - Pleural fibrosis [Unknown]
  - Dystrophic calcification [Unknown]
  - Ovarian cyst [Unknown]
  - Breast cancer metastatic [Unknown]
  - Osteitis [Unknown]
  - Cellulitis [Unknown]
  - Oral infection [Unknown]
  - Abscess [Unknown]
  - Cardiac disorder [Unknown]
  - Excessive granulation tissue [Unknown]
  - Calcinosis [Unknown]
  - Myocardial infarction [Unknown]
  - Thrombosis [Unknown]
  - Vascular calcification [Unknown]
  - Intervertebral disc degeneration [Unknown]
  - Intervertebral disc protrusion [Unknown]
  - Brachiocephalic vein stenosis [Unknown]
  - Vein disorder [Unknown]
  - Vulvovaginitis [Unknown]
  - Blood triglycerides increased [Unknown]
  - Renal cyst [Unknown]
  - Subclavian vein thrombosis [Unknown]
  - Jugular vein thrombosis [Unknown]
  - Osteoarthritis [Unknown]
  - Fatigue [Unknown]
  - Fibromyalgia [Unknown]
  - Duodenal ulcer [Unknown]
  - Diabetes mellitus [Unknown]
  - Cerebrovascular accident [Unknown]
  - Back pain [Unknown]
  - Intervertebral disc disorder [Unknown]
  - Uterovaginal prolapse [Unknown]
  - Malaise [Unknown]
  - Asthenia [Unknown]
  - Cardiac valve disease [Unknown]
  - Mitral valve incompetence [Unknown]
  - Muscular weakness [Unknown]
  - Brow ptosis [Unknown]
  - Blepharitis [Unknown]
  - Cataract [Unknown]
  - Glaucoma [Unknown]
  - Food poisoning [Unknown]
  - Eye haemorrhage [Unknown]
  - Fibrosis [Unknown]
  - Liver disorder [Unknown]
  - Herpes zoster [Unknown]
  - Radiculitis lumbosacral [Unknown]
  - Radiculitis brachial [Unknown]
  - Radiculitis cervical [Unknown]
  - Rotator cuff syndrome [Unknown]
  - Bursitis [Unknown]
  - Blood urine present [Unknown]
  - Dermatitis [Unknown]
  - Type V hyperlipidaemia [Unknown]
  - Thyroid neoplasm [Unknown]
